FAERS Safety Report 6544219-2 (Version None)
Quarter: 2010Q1

REPORT INFORMATION
  Report Type: 
  Country: None (occurrence: None)
  Receive Date: 20100120
  Receipt Date: 20100105
  Transmission Date: 20100710
  Serious: Yes (Hospitalization)
  Sender: FDA-Public Use
  Company Number: CA-GENENTECH-292959

PATIENT
  Sex: Female
  Weight: 90.7 kg

DRUGS (8)
  1. XOLAIR [Suspect]
     Indication: ASTHMA
     Dosage: 375 MG, Q2W
     Route: 058
     Dates: start: 20060105
  2. XOLAIR [Suspect]
     Dosage: 375 MG, Q2W
     Dates: start: 20091124
  3. XOLAIR [Suspect]
     Dosage: 375 MG, Q2W
     Route: 058
     Dates: start: 20091207
  4. XOLAIR [Suspect]
     Dosage: 375 MG, Q2W
     Route: 058
     Dates: start: 20060105
  5. CORTISONE [Concomitant]
     Indication: DRUG USE FOR UNKNOWN INDICATION
     Dosage: 30 MG, UNK
  6. PULMICORT [Concomitant]
     Indication: DRUG USE FOR UNKNOWN INDICATION
  7. OXEZE [Concomitant]
     Indication: DRUG USE FOR UNKNOWN INDICATION
  8. SYMBICORT [Concomitant]
     Indication: DRUG USE FOR UNKNOWN INDICATION
     Dosage: 8 PUFF, QD

REACTIONS (3)
  - ASTHMA [None]
  - HEADACHE [None]
  - HYPERSENSITIVITY [None]
